FAERS Safety Report 4577327-6 (Version None)
Quarter: 2005Q1

REPORT INFORMATION
  Report Type: 
  Country: None (occurrence: None)
  Receive Date: 20050210
  Receipt Date: 20050113
  Transmission Date: 20050727
  Serious: Yes (Other)
  Sender: FDA-Public Use
  Company Number: US-GLAXOSMITHKLINE-A0540516A

PATIENT
  Age: 72 Year
  Sex: Male
  Weight: 84.5 kg

DRUGS (8)
  1. ADVAIR DISKUS 100/50 [Suspect]
     Indication: ASTHMA
     Dosage: 1PUFF TWICE PER DAY
     Route: 055
     Dates: start: 20041001
  2. PREVACID [Concomitant]
     Indication: LIPIDS
     Dosage: 40MG PER DAY
     Route: 048
  3. LASIX [Concomitant]
     Indication: HYPERTENSION
     Dosage: 40MG PER DAY
     Route: 048
  4. DIGOXIN [Concomitant]
     Indication: ARRHYTHMIA
     Dosage: .25MG PER DAY
     Route: 048
  5. VERAPAMIL [Concomitant]
     Indication: HYPERTENSION
     Dosage: 240MG TWICE PER DAY
     Route: 048
  6. KLOR-CON [Concomitant]
     Indication: HYPERTENSION
     Dosage: 10MEQ TWICE PER DAY
     Route: 048
  7. COUMADIN [Concomitant]
     Indication: ARRHYTHMIA
     Route: 048
  8. VITAMIN C [Concomitant]
     Route: 048

REACTIONS (1)
  - LANGERHANS' CELL GRANULOMATOSIS [None]
